FAERS Safety Report 17929901 (Version 1)
Quarter: 2020Q2

REPORT INFORMATION
  Report Type: Spontaneous
  Country: CA (occurrence: CA)
  Receive Date: 20200623
  Receipt Date: 20200623
  Transmission Date: 20200714
  Serious: Yes (Other)
  Sender: FDA-Public Use
  Company Number: CA-ACCORD-186222

PATIENT
  Age: 53 Year
  Sex: Female

DRUGS (2)
  1. ESOMEPRAZOLE/ESOMEPRAZOLE MAGNESIUM/ESOMEPRAZOLE SODIUM [Suspect]
     Active Substance: ESOMEPRAZOLE
     Indication: PRODUCT USED FOR UNKNOWN INDICATION
     Route: 048
  2. ROSUVASTATIN. [Suspect]
     Active Substance: ROSUVASTATIN
     Indication: PRODUCT USED FOR UNKNOWN INDICATION
     Route: 048

REACTIONS (7)
  - Thrombosis [Unknown]
  - Hypotension [Unknown]
  - Abdominal discomfort [Unknown]
  - Hypothyroidism [Unknown]
  - Renal failure [Unknown]
  - Thyroid cancer [Unknown]
  - Liver injury [Unknown]
